FAERS Safety Report 4923482-5 (Version None)
Quarter: 2006Q1

REPORT INFORMATION
  Report Type: 
  Country: None (occurrence: None)
  Receive Date: 20060227
  Receipt Date: 20051111
  Transmission Date: 20060701
  Serious: Yes (Other)
  Sender: FDA-Public Use
  Company Number: US-BRISTOL-MYERS SQUIBB COMPANY-13178090

PATIENT
  Age: 66 Year
  Sex: Female
  Weight: 59 kg

DRUGS (5)
  1. ESTRACE [Suspect]
     Indication: HOT FLUSH
     Dates: start: 19940101, end: 19960101
  2. PREMARIN [Suspect]
     Indication: HOT FLUSH
     Dates: start: 19890101, end: 19960101
  3. CYCRIN [Suspect]
     Indication: HOT FLUSH
     Dates: start: 19950101, end: 19960101
  4. PREMPRO [Suspect]
     Indication: HOT FLUSH
     Dosage: DOSAGE FORM = .625 MG AND 2.5 MG
     Dates: start: 19940101, end: 20030101
  5. PROVERA [Suspect]
     Indication: HOT FLUSH
     Dosage: DOSAGE FORM = 2.5 MG AND 5 MG
     Dates: start: 19890101, end: 19960101

REACTIONS (1)
  - BREAST CANCER [None]
